FAERS Safety Report 10399839 (Version 1)
Quarter: 2014Q1

REPORT INFORMATION
  Report Type: Spontaneous
  Country: US (occurrence: None)
  Receive Date: 20130815
  Receipt Date: 20130815
  Transmission Date: 20141002
  Serious: Yes (Hospitalization, Other)
  Sender: FDA-Public Use
  Company Number: ADR-2012-01412

PATIENT
  Sex: Male

DRUGS (1)
  1. LIORESAL INTRATHECAL (BACLOFEN INJECTION) 2000 MCG/ML [Suspect]
     Dosage: 406 MCG/DAY

REACTIONS (6)
  - Pruritus [None]
  - Clonus [None]
  - Convulsion [None]
  - Hallucination [None]
  - Muscle spasticity [None]
  - Drug withdrawal syndrome [None]
